FAERS Safety Report 18756171 (Version 2)
Quarter: 2021Q1

REPORT INFORMATION
  Report Type: Spontaneous
  Country: JP (occurrence: JP)
  Receive Date: 20210119
  Receipt Date: 20210209
  Transmission Date: 20210419
  Serious: Yes (Hospitalization)
  Sender: FDA-Public Use
  Company Number: JP-MYLANLABS-2020M1104305

PATIENT
  Age: 81 Year
  Sex: Female
  Weight: 32.8 kg

DRUGS (7)
  1. NINJIN^YOEITO [Concomitant]
     Active Substance: HERBALS
     Indication: PRODUCT USED FOR UNKNOWN INDICATION
     Dosage: 1 DOSAGE FORM, TID
     Route: 048
     Dates: start: 20191023, end: 20200701
  2. RHUBARB. [Concomitant]
     Active Substance: RHUBARB
     Indication: PRODUCT USED FOR UNKNOWN INDICATION
     Dosage: 0.5 GRAM, TID
     Route: 048
     Dates: start: 20070719, end: 20200701
  3. TAKEPRON [Concomitant]
     Active Substance: LANSOPRAZOLE
     Indication: PRODUCT USED FOR UNKNOWN INDICATION
     Dosage: 30 MILLIGRAM, QD
     Route: 048
     Dates: start: 20070719, end: 20200701
  4. SODIUM PICOSULFATE [Concomitant]
     Active Substance: SODIUM PICOSULFATE
     Indication: PRODUCT USED FOR UNKNOWN INDICATION
     Dosage: 1 DOSAGE FORM, QD
     Route: 048
     Dates: start: 20141010
  5. GANATON [Concomitant]
     Active Substance: ITOPRIDE
     Indication: PRODUCT USED FOR UNKNOWN INDICATION
     Dosage: 50 MILLIGRAM, TID
     Route: 048
     Dates: start: 20070719
  6. MAGNESIUM OXIDE ^HOEI^ [Suspect]
     Active Substance: MAGNESIUM OXIDE
     Indication: CONSTIPATION
     Dosage: 1 GRAM, TID
     Route: 048
     Dates: start: 20070719, end: 20200701
  7. BIO?THREE [Concomitant]
     Active Substance: HERBALS
     Indication: PRODUCT USED FOR UNKNOWN INDICATION
     Dosage: 3 DOSAGE FORM, TID
     Route: 048
     Dates: start: 20180829, end: 20200708

REACTIONS (1)
  - Lithiasis [Recovered/Resolved]

NARRATIVE: CASE EVENT DATE: 20200701
